FAERS Safety Report 16127941 (Version 1)
Quarter: 2019Q1

REPORT INFORMATION
  Report Type: Spontaneous
  Country: US (occurrence: US)
  Receive Date: 20190225
  Receipt Date: 20190225
  Transmission Date: 20190418
  Serious: Yes (Hospitalization, Other)
  Sender: FDA-Public Use
  Company Number: None

PATIENT
  Age: 54 Year
  Sex: Male

DRUGS (1)
  1. SOFOSBUVIR/VELPATASVIR 400-100MG GILEAD [Suspect]
     Active Substance: SOFOSBUVIR\VELPATASVIR
     Indication: HEPATITIS C
     Route: 048
     Dates: start: 20190204

REACTIONS (8)
  - Nausea [None]
  - Myocardial infarction [None]
  - Infection [None]
  - Vomiting [None]
  - Influenza [None]
  - Gastritis [None]
  - Therapy cessation [None]
  - Dehydration [None]

NARRATIVE: CASE EVENT DATE: 20190225
